FAERS Safety Report 5801574-6 (Version None)
Quarter: 2008Q2

REPORT INFORMATION
  Report Type: 
  Country: None (occurrence: None)
  Receive Date: 20080626
  Receipt Date: 20071121
  Transmission Date: 20081010
  Serious: Yes (Death, Hospitalization)
  Sender: FDA-Public Use
  Company Number: 532800

PATIENT
  Age: 58 Year
  Sex: Female

DRUGS (1)
  1. XELODA [Suspect]
     Indication: HEAD AND NECK CANCER

REACTIONS (5)
  - DIARRHOEA [None]
  - MUCOSAL INFLAMMATION [None]
  - NEOPLASM MALIGNANT [None]
  - VOMITING [None]
  - WHITE BLOOD CELL COUNT DECREASED [None]
